FAERS Safety Report 25670251 (Version 1)
Quarter: 2025Q3

REPORT INFORMATION
  Report Type: Other
  Country: EU (occurrence: EU)
  Receive Date: 20250812
  Receipt Date: 20250812
  Transmission Date: 20251020
  Serious: Yes (Hospitalization)
  Sender: Atnahs Healthcare
  Company Number: None

PATIENT

DRUGS (10)
  1. DIAZEPAM [Interacting]
     Active Substance: DIAZEPAM
     Indication: Anxiety
     Dosage: 5 MG, DAILY
     Route: 048
     Dates: end: 20240319
  2. DIAZEPAM [Interacting]
     Active Substance: DIAZEPAM
     Route: 048
     Dates: end: 20240321
  3. NARDIL [Interacting]
     Active Substance: PHENELZINE SULFATE
     Indication: Depression
     Dosage: 15 MG, DAILY
     Route: 048
     Dates: start: 20240214, end: 20240216
  4. NARDIL [Interacting]
     Active Substance: PHENELZINE SULFATE
     Dosage: 45 MG, DAILY
     Route: 048
     Dates: start: 20240217, end: 20240222
  5. NARDIL [Interacting]
     Active Substance: PHENELZINE SULFATE
     Dosage: 60 MG, DAILY
     Route: 048
     Dates: start: 20240223, end: 20240302
  6. NARDIL [Interacting]
     Active Substance: PHENELZINE SULFATE
     Dosage: 75 MG, DAILY
     Route: 048
     Dates: start: 20240303, end: 20240311
  7. TERALITHE [Interacting]
     Active Substance: LITHIUM CARBONATE
     Indication: Depression
     Dosage: 875 MG, DAILY
     Route: 048
     Dates: end: 20240311
  8. ACETAMINOPHEN [Concomitant]
     Active Substance: ACETAMINOPHEN
     Indication: Product used for unknown indication
     Route: 048
  9. POLYETHYLENE GLYCOLS [Concomitant]
     Active Substance: POLYETHYLENE GLYCOLS
     Indication: Product used for unknown indication
     Route: 048
  10. MELATONIN [Concomitant]
     Active Substance: MELATONIN
     Indication: Product used for unknown indication
     Dosage: 1 DOSAGE FORM, DAILY
     Route: 048

REACTIONS (5)
  - Balance disorder [Recovered/Resolved]
  - Disturbance in attention [Recovered/Resolved]
  - Dysarthria [Recovered/Resolved]
  - Cognitive disorder [Recovering/Resolving]
  - Drug interaction [Recovered/Resolved]

NARRATIVE: CASE EVENT DATE: 20240214
